FAERS Safety Report 6944680-5 (Version None)
Quarter: 2010Q3

REPORT INFORMATION
  Report Type: 
  Country: None (occurrence: None)
  Receive Date: 20100827
  Receipt Date: 20100629
  Transmission Date: 20110219
  Serious: Yes (Other)
  Sender: FDA-Public Use
  Company Number: US-WYE-H16926410

PATIENT
  Sex: Female
  Weight: 69.5 kg

DRUGS (5)
  1. PREMARIN [Suspect]
     Indication: ATROPHIC VULVOVAGINITIS
     Dosage: 2.5MG
     Route: 065
  2. PREMARIN [Suspect]
     Dosage: CHANGED TO 0.3MG
     Route: 065
  3. SYNTHROID [Concomitant]
     Indication: PRODUCT USED FOR UNKNOWN INDICATION
     Dosage: UNKNOWN
     Route: 065
  4. CRESTOR [Concomitant]
     Indication: PRODUCT USED FOR UNKNOWN INDICATION
     Route: 048
  5. ESTRING [Suspect]
     Indication: ATROPHIC VULVOVAGINITIS
     Dosage: UNKNOWN
     Route: 065
     Dates: start: 20100615

REACTIONS (8)
  - BLOOD GLUCOSE DECREASED [None]
  - BLOOD GLUCOSE INCREASED [None]
  - BREAST LUMP REMOVAL [None]
  - MEMORY IMPAIRMENT [None]
  - SPEECH DISORDER [None]
  - TENDON INJURY [None]
  - UTERINE PROLAPSE [None]
  - VISION BLURRED [None]
